FAERS Safety Report 12528685 (Version 3)
Quarter: 2016Q3

REPORT INFORMATION
  Report Type: Report from Study
  Country: US (occurrence: US)
  Receive Date: 20160705
  Receipt Date: 20160705
  Transmission Date: 20161109
  Serious: Yes (Hospitalization, Other)
  Sender: FDA-Public Use
  Company Number: US-BAYER-2016-069190

PATIENT
  Age: 67 Year
  Sex: Female
  Weight: 68.27 kg

DRUGS (2)
  1. ADEMPAS [Suspect]
     Active Substance: RIOCIGUAT
     Indication: PULMONARY HYPERTENSION
     Dosage: 1 MG, TID
     Route: 048
  2. ADEMPAS [Suspect]
     Active Substance: RIOCIGUAT
     Indication: PULMONARY HYPERTENSION
     Dosage: UNK
     Route: 048
     Dates: start: 20160324

REACTIONS (5)
  - Lymphadenopathy [Unknown]
  - Hospitalisation [Not Recovered/Not Resolved]
  - Wrist fracture [None]
  - Sensation of foreign body [Unknown]
  - Nausea [Unknown]

NARRATIVE: CASE EVENT DATE: 201606
